FAERS Safety Report 13801923 (Version 1)
Quarter: 2017Q3

REPORT INFORMATION
  Report Type: Spontaneous
  Country: FR (occurrence: FR)
  Receive Date: 20170727
  Receipt Date: 20170727
  Transmission Date: 20171127
  Serious: Yes (Death, Life-Threatening, Hospitalization)
  Sender: FDA-Public Use
  Company Number: FR-SA-2017SA134356

PATIENT
  Age: 78 Year
  Sex: Male

DRUGS (17)
  1. VANCOMYCIN [Suspect]
     Active Substance: VANCOMYCIN
     Route: 042
     Dates: start: 20150131
  2. BIPRETERAX [Concomitant]
     Active Substance: INDAPAMIDE\PERINDOPRIL
  3. METFORMIN [Concomitant]
     Active Substance: METFORMIN HYDROCHLORIDE
  4. BIPROFENID [Suspect]
     Active Substance: KETOPROFEN
     Route: 065
     Dates: start: 20141129, end: 20141203
  5. ORBENINE [Suspect]
     Active Substance: CLOXACILLIN SODIUM
     Route: 042
  6. ALLOPURINOL. [Concomitant]
     Active Substance: ALLOPURINOL
     Dosage: STRENGTH: 300MG
  7. AMLOR [Concomitant]
     Active Substance: AMLODIPINE BESYLATE
     Dosage: STRENGTH: 10MG
  8. LOVENOX [Concomitant]
     Active Substance: ENOXAPARIN SODIUM
  9. GENTAMICIN. [Suspect]
     Active Substance: GENTAMICIN
     Route: 042
     Dates: start: 20141128, end: 20141201
  10. ORBENINE [Suspect]
     Active Substance: CLOXACILLIN SODIUM
     Route: 042
  11. ORBENINE [Suspect]
     Active Substance: CLOXACILLIN SODIUM
     Route: 042
     Dates: start: 20141129, end: 20150130
  12. RIFAMPICIN [Suspect]
     Active Substance: RIFAMPIN
     Route: 042
     Dates: start: 20141219
  13. AUGMENTIN [Suspect]
     Active Substance: AMOXICILLIN\CLAVULANATE POTASSIUM
     Route: 042
     Dates: start: 20141108, end: 20141120
  14. CRESTOR [Concomitant]
     Active Substance: ROSUVASTATIN CALCIUM
  15. RIFAMPICIN [Suspect]
     Active Substance: RIFAMPIN
     Route: 042
     Dates: end: 20150130
  16. VANCOMYCIN [Suspect]
     Active Substance: VANCOMYCIN
     Route: 042
     Dates: start: 20141128, end: 20141129
  17. INEXIUM [Concomitant]
     Active Substance: ESOMEPRAZOLE

REACTIONS (4)
  - Diarrhoea [Fatal]
  - Jaundice [Fatal]
  - Renal tubular necrosis [Recovered/Resolved]
  - Acidosis [Fatal]

NARRATIVE: CASE EVENT DATE: 20141203
